FAERS Safety Report 9250608 (Version 1)
Quarter: 2013Q1

REPORT INFORMATION
  Report Type: Spontaneous
  Country: US (occurrence: None)
  Receive Date: 20130305
  Receipt Date: 20130305
  Transmission Date: 20140127
  Serious: Yes (Other)
  Sender: FDA-Public Use
  Company Number: 163-21880-12042642

PATIENT
  Age: 65 Year
  Sex: Female

DRUGS (11)
  1. REVLIMID [Suspect]
     Indication: PLASMA CELL MYELOMA
     Dosage: 21 IN 21 D.
     Route: 048
     Dates: start: 20101116
  2. ASA (ACETYOLSALICYLIC ACID) [Concomitant]
  3. PEPCID (FAMOTIDINE) [Concomitant]
  4. FLONASE (FLUTICASONE PROPIONATE) [Concomitant]
  5. LEVOTHYROXINE (LEVOTHYROXINE) [Concomitant]
  6. LEXAPRO (ESCITALOPRAM OXALATE) [Concomitant]
  7. CALCIUM (CALCIUM ) [Concomitant]
  8. LACGTAID (TILACTASE) [Concomitant]
  9. INTEGRA F (INTEGRA F) [Concomitant]
  10. VITAMINS [Concomitant]
  11. REGLAN (METOCLOPRAMIDE) [Concomitant]

REACTIONS (1)
  - Full blood count decreased [None]
